FAERS Safety Report 5453988-4 (Version None)
Quarter: 2007Q3

REPORT INFORMATION
  Report Type: 
  Country: None (occurrence: None)
  Receive Date: 20070917
  Receipt Date: 20070228
  Transmission Date: 20080115
  Serious: Yes (Hospitalization)
  Sender: FDA-Public Use
  Company Number: US-ASTRAZENECA-2006UW04260

PATIENT
  Sex: Female
  Weight: 140.9 kg

DRUGS (4)
  1. SEROQUEL [Suspect]
     Indication: BIPOLAR DISORDER
     Route: 048
     Dates: start: 20050201
  2. SEROQUEL [Suspect]
     Indication: SCHIZOAFFECTIVE DISORDER
     Route: 048
     Dates: start: 20050201
  3. ABILIFY [Concomitant]
  4. HALDOL [Concomitant]

REACTIONS (3)
  - DIABETES MELLITUS [None]
  - OVERDOSE [None]
  - SUICIDE ATTEMPT [None]
